FAERS Safety Report 9317719 (Version 1)
Quarter: 2013Q2

REPORT INFORMATION
  Report Type: Spontaneous
  Country: US (occurrence: US)
  Receive Date: 20130530
  Receipt Date: 20130530
  Transmission Date: 20140414
  Serious: No
  Sender: FDA-Public Use
  Company Number: US-GLAXOSMITHKLINE-A0978040A

PATIENT
  Age: 31 Year
  Sex: Female

DRUGS (2)
  1. VENTOLIN [Suspect]
     Indication: ASTHMA
     Dosage: 2PUFF PER DAY
     Route: 055
     Dates: start: 20120517
  2. LEVAQUIN [Concomitant]

REACTIONS (3)
  - Accidental exposure to product [Not Recovered/Not Resolved]
  - Dry mouth [Unknown]
  - Product quality issue [Unknown]
